FAERS Safety Report 23204553 (Version 1)
Quarter: 2023Q4

REPORT INFORMATION
  Report Type: Other
  Country: GB (occurrence: GB)
  Receive Date: 20231120
  Receipt Date: 20231120
  Transmission Date: 20240110
  Serious: Yes (Disabling, Other)
  Sender: FDA-Public Use
  Company Number: None

PATIENT
  Age: 58 Year
  Sex: Female
  Weight: 66 kg

DRUGS (5)
  1. PREDNISOLONE [Suspect]
     Active Substance: PREDNISOLONE
     Indication: Adverse drug reaction
     Dosage: 5 MILLIGRAM, QD, 6 X 5MG PER DAY;TABLET
     Route: 065
     Dates: start: 20230825, end: 20230831
  2. CALCITRIOL [Suspect]
     Active Substance: CALCITRIOL
     Indication: Adverse drug reaction
     Dosage: BID, CREAM TO BE APPLIED TWICE PER DAY
     Route: 065
     Dates: start: 20230907, end: 20230912
  3. CALCITRIOL [Suspect]
     Active Substance: CALCITRIOL
     Indication: Psoriasis
  4. ELIDEL [Suspect]
     Active Substance: PIMECROLIMUS
     Indication: Adverse drug reaction
     Dosage: UNK
     Route: 065
     Dates: start: 20230720, end: 20230824
  5. ELIDEL [Suspect]
     Active Substance: PIMECROLIMUS
     Indication: Rash

REACTIONS (2)
  - Topical steroid withdrawal reaction [None]
  - Medication error [Unknown]

NARRATIVE: CASE EVENT DATE: 20230824
